FAERS Safety Report 21960776 (Version 3)
Quarter: 2023Q2

REPORT INFORMATION
  Report Type: Spontaneous
  Country: US (occurrence: US)
  Receive Date: 20230207
  Receipt Date: 20230418
  Transmission Date: 20230722
  Serious: No
  Sender: FDA-Public Use
  Company Number: US-TEVA-2023-US-2851893

PATIENT
  Age: 37 Year
  Sex: Female
  Weight: 76.2 kg

DRUGS (1)
  1. ALBUTEROL SULFATE [Suspect]
     Active Substance: ALBUTEROL SULFATE
     Indication: Bronchitis
     Dosage: 90 MCG/DOSE,1 PUFF TWICE DAILY
     Route: 055
     Dates: start: 20221216, end: 20230127

REACTIONS (2)
  - Taste disorder [Unknown]
  - Secretion discharge [Unknown]

NARRATIVE: CASE EVENT DATE: 20221201
